FAERS Safety Report 11834882 (Version 2)
Quarter: 2019Q4

REPORT INFORMATION
  Report Type: Spontaneous
  Country: US (occurrence: US)
  Receive Date: 20151215
  Receipt Date: 20191210
  Transmission Date: 20200122
  Serious: Yes (Hospitalization)
  Sender: FDA-Public Use
  Company Number: US-JNJFOC-20151102903

PATIENT
  Age: 73 Year
  Sex: Female
  Weight: 82.8 kg

DRUGS (8)
  1. XARELTO [Suspect]
     Active Substance: RIVAROXABAN
     Indication: ATRIAL FIBRILLATION
     Route: 048
     Dates: start: 20140422, end: 20140715
  2. PREDNISONE. [Suspect]
     Active Substance: PREDNISONE
     Indication: OSTEOARTHRITIS
     Route: 048
  3. PREDNISONE. [Suspect]
     Active Substance: PREDNISONE
     Indication: JOINT EFFUSION
  4. ANAPROX [Suspect]
     Active Substance: NAPROXEN SODIUM
     Indication: JOINT EFFUSION
  5. MOBIC [Suspect]
     Active Substance: MELOXICAM
     Indication: JOINT EFFUSION
  6. SOTALOL. [Concomitant]
     Active Substance: SOTALOL
     Indication: ATRIAL FIBRILLATION
  7. MOBIC [Suspect]
     Active Substance: MELOXICAM
     Indication: OSTEOARTHRITIS
     Route: 048
  8. ANAPROX [Suspect]
     Active Substance: NAPROXEN SODIUM
     Indication: OSTEOARTHRITIS
     Route: 048

REACTIONS (1)
  - Peptic ulcer haemorrhage [Recovering/Resolving]

NARRATIVE: CASE EVENT DATE: 20140715
